FAERS Safety Report 13187047 (Version 1)
Quarter: 2017Q1

REPORT INFORMATION
  Report Type: Spontaneous
  Country: FR (occurrence: FR)
  Receive Date: 20170206
  Receipt Date: 20170206
  Transmission Date: 20170428
  Serious: Yes (Hospitalization)
  Sender: FDA-Public Use
  Company Number: FR-ROCHE-1888065

PATIENT
  Age: 58 Year
  Sex: Female

DRUGS (14)
  1. CARDENSIEL [Concomitant]
     Active Substance: BISOPROLOL FUMARATE
     Dosage: IN THE MORNING AND IN THE EVENING
     Route: 065
  2. LASILIX [Concomitant]
     Active Substance: FUROSEMIDE
     Dosage: IN THE MORNING (2DF DAILY),
     Route: 065
  3. ACUPAN [Concomitant]
     Active Substance: NEFOPAM HYDROCHLORIDE
     Dosage: 4 TIMES DAILY IF PAIN
     Route: 065
  4. RISORDAN [Concomitant]
     Active Substance: ISOSORBIDE DINITRATE
     Dosage: 3 BOLUS OF 2MG THEN 3MG/H IV WITH ELECTRIC SYRINGE
     Route: 065
  5. ALDACTONE [Concomitant]
     Active Substance: SPIRONOLACTONE
     Dosage: IN THE MORNING
     Route: 065
  6. KARDEGIC [Concomitant]
     Active Substance: ASPIRIN LYSINE
     Dosage: IN THE MORNING. 1DF DAILY
     Route: 065
  7. LOVENOX [Concomitant]
     Active Substance: ENOXAPARIN SODIUM
     Dosage: IN THE EVENING
     Route: 065
  8. ACTISKENAN [Concomitant]
     Active Substance: MORPHINE SULFATE
     Dosage: 6 TIMES DAILY IF ANALOGICAL VISUAL SCALE }4
     Route: 065
  9. HERCEPTIN [Suspect]
     Active Substance: TRASTUZUMAB
     Indication: BREAST CANCER
     Dosage: 7 CYCLES INITIALLY SCHEDULED. DISCONTINUATION OF HERCEPTIN AFTER THE THIRD CYCLE
     Route: 041
     Dates: start: 201210, end: 2012
  10. LASILIX [Concomitant]
     Active Substance: FUROSEMIDE
     Route: 040
  11. TRIATEC (FRANCE) [Concomitant]
     Active Substance: RAMIPRIL
     Dosage: (IN THE MORNING AND IN THE EVENING)
     Route: 065
  12. BISOPROLOL [Concomitant]
     Active Substance: BISOPROLOL
     Route: 065
  13. TAHOR [Concomitant]
     Active Substance: ATORVASTATIN CALCIUM
     Dosage: (1DF DAILY)
     Route: 065
  14. RAMIPRIL. [Concomitant]
     Active Substance: RAMIPRIL
     Dosage: 1 TABLET TWICE DAILY
     Route: 065

REACTIONS (4)
  - Acute pulmonary oedema [Recovering/Resolving]
  - Mitral valve incompetence [Recovering/Resolving]
  - Cardiac failure [Recovering/Resolving]
  - Aortic valve incompetence [Recovering/Resolving]

NARRATIVE: CASE EVENT DATE: 2013
